FAERS Safety Report 9748068 (Version 1)
Quarter: 2013Q4

REPORT INFORMATION
  Report Type: Spontaneous
  Country: US (occurrence: None)
  Receive Date: 20131206
  Receipt Date: 20131206
  Transmission Date: 20140711
  Serious: Yes (Hospitalization, Other)
  Sender: FDA-Public Use
  Company Number: DSU-2013-05241

PATIENT
  Age: 61 Year
  Sex: Male

DRUGS (5)
  1. OLMESARTAN MEDOXOMIL [Suspect]
     Indication: HYPERTENSION
     Route: 048
     Dates: start: 2008
  2. AMLODIPINE (AMLODIPINE) (AMLODIPINE) [Concomitant]
  3. BUDESONIDE (BUDESONIDE( (BUDESONIDE) [Concomitant]
  4. PRAVASTATIN (PRAVASTATIN) (PRAVASTATIN) [Concomitant]
  5. ASPIRIN (ACETYLSALICYLIC ACID) (ACETYLSALICYLIC ACID) [Concomitant]

REACTIONS (3)
  - Malabsorption [None]
  - Fatigue [None]
  - Colitis microscopic [None]
